FAERS Safety Report 19969091 (Version 3)
Quarter: 2021Q4

REPORT INFORMATION
  Report Type: Report from Study
  Country: DE (occurrence: DE)
  Receive Date: 20211019
  Receipt Date: 20211116
  Transmission Date: 20220303
  Serious: Yes (Other)
  Sender: FDA-Public Use
  Company Number: DE-002147023-NVSC2020DE286765

PATIENT
  Sex: Female
  Weight: 87 kg

DRUGS (8)
  1. EXEMESTANE [Suspect]
     Active Substance: EXEMESTANE
     Indication: Breast cancer metastatic
     Dosage: 25 MILLIGRAM, QD
     Route: 048
     Dates: start: 20200812
  2. KISQALI [Suspect]
     Active Substance: RIBOCICLIB
     Indication: Breast cancer metastatic
     Dosage: 400 MILLIGRAM, 400 MG (SCHEMA 21 DAYS INTAKE, 7 DAYS PAUSE)
     Route: 048
     Dates: start: 20210622, end: 20210719
  3. KISQALI [Suspect]
     Active Substance: RIBOCICLIB
     Dosage: 600 MILLIGRAM, QD (21 DAYS INTAKE)
     Route: 048
     Dates: start: 20200908, end: 20201005
  4. KISQALI [Suspect]
     Active Substance: RIBOCICLIB
     Dosage: 600 MILLIGRAM, QD (21 DAYS INTAKE)/START: 13-OCT-2020
     Route: 048
     Dates: start: 20201013, end: 20210104
  5. KISQALI [Suspect]
     Active Substance: RIBOCICLIB
     Dosage: 600 MILLIGRAM, QD (21 DAYS INTAKE)/START:12-JAN-2021
     Route: 048
     Dates: start: 20210112, end: 20210308
  6. KISQALI [Suspect]
     Active Substance: RIBOCICLIB
     Dosage: 600 MILLIGRAM, QD,(DAILY DOSE)(SCHEMA 21 DAYS INTAKE)/START:16-MAR-2021
     Route: 048
     Dates: start: 20210316, end: 20210412
  7. KISQALI [Suspect]
     Active Substance: RIBOCICLIB
     Dosage: 400 MILLIGRAM, (DAILY DOSE) (SCHEMA 21 DAYS INTAKE, 7 DAYS PAUSE/START: 20-APR-2021
     Route: 048
     Dates: start: 20210420, end: 20210614
  8. KISQALI [Suspect]
     Active Substance: RIBOCICLIB
     Dosage: 400 MILLIGRAM (400 MG (SCHEMA 21 DAYS INTAKE, 7 DAYS PAUSE))
     Route: 048
     Dates: start: 20210721

REACTIONS (3)
  - Neutropenia [Recovering/Resolving]
  - Leukopenia [Not Recovered/Not Resolved]
  - Blood calcium decreased [Recovered/Resolved]

NARRATIVE: CASE EVENT DATE: 20201005
